FAERS Safety Report 9003877 (Version 1)
Quarter: 2013Q1

REPORT INFORMATION
  Report Type: Spontaneous
  Country: US (occurrence: US)
  Receive Date: 20130108
  Receipt Date: 20130108
  Transmission Date: 20140127
  Serious: No
  Sender: FDA-Public Use
  Company Number: US-GLAXOSMITHKLINE-A0999964A

PATIENT
  Age: 81 Year
  Sex: Female

DRUGS (5)
  1. LOVAZA [Suspect]
     Indication: BLOOD TRIGLYCERIDES INCREASED
     Dosage: 4CAP PER DAY
     Route: 048
     Dates: start: 2010
  2. ASPIRIN [Concomitant]
  3. LOSARTAN [Concomitant]
  4. VITAMIN D3 [Concomitant]
  5. VESICARE [Concomitant]

REACTIONS (1)
  - Extrasystoles [Recovered/Resolved]
